FAERS Safety Report 18243379 (Version 20)
Quarter: 2022Q4

REPORT INFORMATION
  Report Type: Report from Study
  Country: FR (occurrence: FR)
  Receive Date: 20200908
  Receipt Date: 20221018
  Transmission Date: 20230113
  Serious: Yes (Death, Hospitalization)
  Sender: FDA-Public Use
  Company Number: FR-GLAXOSMITHKLINE-FR2020158924

PATIENT
  Age: 74 Year
  Sex: Male

DRUGS (111)
  1. PIPERACILLIN SODIUM\TAZOBACTAM SODIUM [Suspect]
     Active Substance: PIPERACILLIN SODIUM\TAZOBACTAM SODIUM
     Indication: Pneumonia
     Dosage: 12 GRAM, QD (4 G, TID)
     Route: 042
     Dates: start: 20200723, end: 20200730
  2. PIPERACILLIN SODIUM\TAZOBACTAM SODIUM [Suspect]
     Active Substance: PIPERACILLIN SODIUM\TAZOBACTAM SODIUM
     Dosage: 84 GRAM
     Route: 042
  3. PIPERACILLIN SODIUM\TAZOBACTAM SODIUM [Suspect]
     Active Substance: PIPERACILLIN SODIUM\TAZOBACTAM SODIUM
     Dosage: 12 GRAM
     Route: 042
  4. PIPERACILLIN SODIUM\TAZOBACTAM SODIUM [Suspect]
     Active Substance: PIPERACILLIN SODIUM\TAZOBACTAM SODIUM
     Indication: Tracheobronchitis
     Dosage: 252 GRAM, QD
     Route: 042
     Dates: start: 20200723, end: 20200730
  5. THIAMINE [Suspect]
     Active Substance: THIAMINE
     Indication: Product used for unknown indication
     Dosage: UNK
     Route: 065
  6. THIAMINE [Suspect]
     Active Substance: THIAMINE
     Indication: Product used for unknown indication
     Dosage: UNK
     Route: 065
  7. PROPOFOL [Suspect]
     Active Substance: PROPOFOL
     Dosage: 150 MG/HR, CO
     Route: 042
     Dates: start: 20200709, end: 20200720
  8. POLYETHYLENE GLYCOLS [Suspect]
     Active Substance: POLYETHYLENE GLYCOLS
     Indication: Constipation
     Dosage: 4 DOSAGE FORM, QD, 2 SACHET, BID
     Route: 048
     Dates: start: 20200713, end: 20200715
  9. POLYETHYLENE GLYCOLS [Suspect]
     Active Substance: POLYETHYLENE GLYCOLS
     Dosage: UNK UNK, QD
     Route: 048
     Dates: start: 20200713, end: 20200715
  10. ACETAMINOPHEN [Suspect]
     Active Substance: ACETAMINOPHEN
     Indication: Pyrexia
     Dosage: 1 GRAM, PRN
     Route: 042
     Dates: start: 20200719, end: 20200730
  11. ACETAMINOPHEN [Suspect]
     Active Substance: ACETAMINOPHEN
     Dosage: 1 GRAM
     Route: 042
     Dates: start: 20200719, end: 20200730
  12. ACETAMINOPHEN [Suspect]
     Active Substance: ACETAMINOPHEN
     Dosage: UNK
     Route: 065
  13. CEFOTAXIME [Suspect]
     Active Substance: CEFOTAXIME SODIUM
     Indication: Pneumonia
     Dosage: 6 GRAM, QD (2 G, TID)
     Route: 042
     Dates: start: 20200708, end: 20200715
  14. CEFOTAXIME [Suspect]
     Active Substance: CEFOTAXIME SODIUM
     Dosage: 42 GRAM
     Route: 042
     Dates: start: 20200708
  15. CEFOTAXIME [Suspect]
     Active Substance: CEFOTAXIME SODIUM
     Dosage: 6 GRAM
     Route: 042
  16. SERTRALINE [Suspect]
     Active Substance: SERTRALINE HYDROCHLORIDE
     Indication: Depression
     Dosage: 50 MILLIGRAM, QD (50 MG, SINGLE)
     Route: 048
     Dates: start: 20200726, end: 20200810
  17. SERTRALINE [Suspect]
     Active Substance: SERTRALINE HYDROCHLORIDE
     Dosage: 746.35 MILLIGRAM
     Route: 048
  18. SERTRALINE [Suspect]
     Active Substance: SERTRALINE HYDROCHLORIDE
     Dosage: 50 MILLIGRAM
     Route: 048
  19. SERTRALINE [Suspect]
     Active Substance: SERTRALINE HYDROCHLORIDE
     Dosage: 1 DOSAGE FORM
     Route: 048
     Dates: start: 20200726
  20. SERTRALINE [Suspect]
     Active Substance: SERTRALINE HYDROCHLORIDE
     Indication: Pneumonia
     Dosage: 9 INTERNATIONAL UNIT, QD
     Route: 042
     Dates: start: 20200708, end: 20200715
  21. HYDROXYZINE [Suspect]
     Active Substance: HYDROXYZINE HYDROCHLORIDE
     Indication: Product used for unknown indication
     Dosage: UNK
     Route: 065
  22. LANSOPRAZOLE [Suspect]
     Active Substance: LANSOPRAZOLE
     Indication: Gastrointestinal disorder prophylaxis
     Dosage: 30 MILLIGRAM, QD (3 MG, SINGLE)
     Route: 048
     Dates: start: 20200710, end: 20200805
  23. LANSOPRAZOLE [Suspect]
     Active Substance: LANSOPRAZOLE
     Indication: Prophylaxis
     Dosage: 78 MILLIGRAM
     Route: 048
  24. LANSOPRAZOLE [Suspect]
     Active Substance: LANSOPRAZOLE
     Dosage: 3 MILLIGRAM, QD
     Route: 048
     Dates: start: 20200210, end: 20200805
  25. LANSOPRAZOLE [Suspect]
     Active Substance: LANSOPRAZOLE
     Dosage: 3 MILLIGRAM, QD
     Route: 048
     Dates: start: 20200710, end: 20200805
  26. LANSOPRAZOLE [Suspect]
     Active Substance: LANSOPRAZOLE
     Dosage: 30 MILLIGRAM, QD
     Route: 048
  27. LANSOPRAZOLE [Suspect]
     Active Substance: LANSOPRAZOLE
     Dosage: 81 MILLIGRAM
     Route: 065
  28. LANSOPRAZOLE [Suspect]
     Active Substance: LANSOPRAZOLE
     Dosage: 1 DOSAGE FORM
     Route: 048
     Dates: start: 20200710
  29. LANSOPRAZOLE [Suspect]
     Active Substance: LANSOPRAZOLE
     Dosage: 78 MILLIGRAM
     Route: 065
     Dates: start: 20200710, end: 20200805
  30. LANSOPRAZOLE [Suspect]
     Active Substance: LANSOPRAZOLE
     Dosage: 30 MILLIGRAM
     Route: 065
  31. CALCIUM LACTATE [Suspect]
     Active Substance: CALCIUM LACTATE
     Indication: Product used for unknown indication
     Dosage: UNK
     Route: 065
  32. THIAMINE [Suspect]
     Active Substance: THIAMINE
     Indication: Product used for unknown indication
     Dosage: UNK
     Route: 065
  33. METHYLPREDNISOLONE SODIUM SUCCINATE [Suspect]
     Active Substance: METHYLPREDNISOLONE SODIUM SUCCINATE
     Indication: Acute respiratory distress syndrome
     Dosage: 120 MG, 1D
     Route: 042
     Dates: start: 20200708, end: 20200723
  34. METHYLPREDNISOLONE SODIUM SUCCINATE [Suspect]
     Active Substance: METHYLPREDNISOLONE SODIUM SUCCINATE
     Dosage: 1800 MILLIGRAM
     Route: 042
  35. METHYLPREDNISOLONE SODIUM SUCCINATE [Suspect]
     Active Substance: METHYLPREDNISOLONE SODIUM SUCCINATE
     Dosage: 1200 MILLIGRAM
     Route: 042
  36. METHYLPREDNISOLONE SODIUM SUCCINATE [Suspect]
     Active Substance: METHYLPREDNISOLONE SODIUM SUCCINATE
     Dosage: 1200 MILLIGRAM
     Route: 042
     Dates: start: 20200708, end: 20200723
  37. IMODIUM [Suspect]
     Active Substance: LOPERAMIDE HYDROCHLORIDE
     Indication: Diarrhoea
     Dosage: 4 MILLIGRAM, QD (4 MG, SINGLE)
     Route: 048
     Dates: start: 20200804, end: 20200804
  38. IMODIUM [Suspect]
     Active Substance: LOPERAMIDE HYDROCHLORIDE
     Dosage: UNK
     Route: 065
  39. SPIRAMYCIN [Suspect]
     Active Substance: SPIRAMYCIN
     Indication: Pneumonia
     Dosage: 3 MILLION IU, TID
     Route: 042
     Dates: start: 20200708, end: 20200715
  40. RACECADOTRIL [Suspect]
     Active Substance: RACECADOTRIL
     Indication: Product used for unknown indication
     Dosage: UNK
     Route: 065
     Dates: start: 20200727, end: 20200804
  41. OXAZEPAM [Suspect]
     Active Substance: OXAZEPAM
     Indication: Anxiolytic therapy
     Dosage: 10 MG, 1D
     Route: 048
     Dates: start: 20200802, end: 20200804
  42. OXAZEPAM [Suspect]
     Active Substance: OXAZEPAM
     Dosage: 20 MILLIGRAM, QD
     Route: 048
  43. OXAZEPAM [Suspect]
     Active Substance: OXAZEPAM
     Dosage: 10 MILLIGRAM
     Route: 048
  44. LOVENOX [Suspect]
     Active Substance: ENOXAPARIN SODIUM
     Indication: Phlebitis
     Dosage: 6000 IU, SINGLE
     Route: 058
     Dates: start: 20200708, end: 20200807
  45. LOVENOX [Suspect]
     Active Substance: ENOXAPARIN SODIUM
     Dosage: UNK
     Route: 065
  46. LOVENOX [Suspect]
     Active Substance: ENOXAPARIN SODIUM
     Dosage: 6000 INTERNATIONAL UNIT, QD(SINGLE)
     Route: 058
     Dates: start: 20200708, end: 20200708
  47. LOVENOX [Suspect]
     Active Substance: ENOXAPARIN SODIUM
     Dosage: 180000 INTERNATIONAL UNIT
     Route: 065
  48. HUMALOG [Suspect]
     Active Substance: INSULIN LISPRO
     Indication: Product used for unknown indication
     Dosage: 1 INTERNATIONAL UNIT (CO)
     Route: 042
     Dates: start: 20200709, end: 20200730
  49. HUMALOG [Suspect]
     Active Substance: INSULIN LISPRO
     Dosage: UNK
     Route: 065
  50. OXAZEPAM [Suspect]
     Active Substance: OXAZEPAM
     Indication: Anxiolytic therapy
     Dosage: 20 MILLIGRAM, QD
     Route: 048
  51. OXAZEPAM [Suspect]
     Active Substance: OXAZEPAM
     Dosage: 10 MILLIGRAM, QD
     Route: 048
     Dates: start: 20200802, end: 20200804
  52. OXAZEPAM [Suspect]
     Active Substance: OXAZEPAM
     Dosage: 10 MILLIGRAM, QD
     Route: 048
     Dates: start: 20200802, end: 20200804
  53. OXAZEPAM [Suspect]
     Active Substance: OXAZEPAM
     Dosage: 90 MILLIGRAM
     Route: 065
  54. LORAZEPAM [Suspect]
     Active Substance: LORAZEPAM
     Indication: Anxiolytic therapy
     Dosage: 2.5 MILLIGRAM, TIME INTERVAL: 0.25 DAYS
     Route: 048
     Dates: start: 20200726, end: 20200727
  55. LORAZEPAM [Suspect]
     Active Substance: LORAZEPAM
     Dosage: 10 MILLIGRAM
     Route: 048
  56. LORAZEPAM [Suspect]
     Active Substance: LORAZEPAM
     Dosage: 10 MILLIGRAM
     Route: 048
  57. FUROSEMIDE [Suspect]
     Active Substance: FUROSEMIDE
     Indication: Product used for unknown indication
     Dosage: UNK
     Route: 065
  58. MORPHINE [Suspect]
     Active Substance: MORPHINE
     Indication: Product used for unknown indication
     Dosage: UNK
     Route: 065
  59. POTASSIUM CHLORIDE [Suspect]
     Active Substance: POTASSIUM CHLORIDE
     Indication: Product used for unknown indication
     Dosage: UNK
     Route: 065
  60. NOREPINEPHRINE [Suspect]
     Active Substance: NOREPINEPHRINE
     Indication: Sedation
     Dosage: 0.8 MG/HR, CO
     Route: 042
     Dates: start: 20200709, end: 20200712
  61. NOREPINEPHRINE [Suspect]
     Active Substance: NOREPINEPHRINE
     Dosage: 8 MILLIGRAM
     Route: 042
     Dates: start: 20200709, end: 20200712
  62. REMIFENTANIL [Suspect]
     Active Substance: REMIFENTANIL
     Indication: Sedation
     Dosage: 0.1 MICROGRAM(DOSE: 0.1 MCG/KG/MIN )
     Route: 042
     Dates: start: 20200720, end: 20200730
  63. REMIFENTANIL [Suspect]
     Active Substance: REMIFENTANIL
     Dosage: UNK
     Route: 042
     Dates: start: 20200720, end: 20200730
  64. FUROSEMIDE [Suspect]
     Active Substance: FUROSEMIDE
     Indication: Product used for unknown indication
     Dosage: UNK
     Route: 065
  65. POTASSIUM GLUCONATE [Suspect]
     Active Substance: POTASSIUM GLUCONATE
     Indication: Product used for unknown indication
     Dosage: UNK
     Route: 065
  66. POTASSIUM CHLORIDE [Suspect]
     Active Substance: POTASSIUM CHLORIDE
     Indication: Product used for unknown indication
     Dosage: UNK
     Route: 065
  67. LORAZEPAM [Suspect]
     Active Substance: LORAZEPAM
     Indication: Anxiolytic therapy
     Dosage: 10 MILLIGRAM, QD 2.5 MG, QID
     Route: 048
     Dates: start: 20200726, end: 20200727
  68. LORAZEPAM [Suspect]
     Active Substance: LORAZEPAM
     Dosage: 10 MILLIGRAM
     Route: 048
  69. LORAZEPAM [Suspect]
     Active Substance: LORAZEPAM
     Dosage: 10 MILLIGRAM
     Route: 048
  70. LORAZEPAM [Suspect]
     Active Substance: LORAZEPAM
     Dosage: 40 MILLIGRAM (2.5 MG, QID )
     Route: 048
     Dates: start: 20200726, end: 20200727
  71. SUFENTANIL [Suspect]
     Active Substance: SUFENTANIL
     Indication: Gait disturbance
     Dosage: UNK
     Route: 065
  72. SUFENTANIL [Suspect]
     Active Substance: SUFENTANIL
     Indication: Sedation
     Dosage: 0.33 UNK
     Route: 042
     Dates: start: 20200709, end: 20200717
  73. SUFENTANIL [Suspect]
     Active Substance: SUFENTANIL
     Dosage: 33 MICROGRAM
     Route: 042
     Dates: start: 20200709, end: 20200717
  74. SUFENTANIL [Suspect]
     Active Substance: SUFENTANIL
     Dosage: UNK
     Route: 065
     Dates: start: 20200709, end: 20200717
  75. URAPIDIL [Suspect]
     Active Substance: URAPIDIL
     Indication: Hypertension
     Dosage: 5 MG/HR, CO
     Route: 042
     Dates: start: 20200709, end: 20200709
  76. URAPIDIL [Suspect]
     Active Substance: URAPIDIL
     Dosage: 5 MILLIGRAM, QD
     Route: 042
     Dates: start: 20200709, end: 20200709
  77. PIPERACILLIN [Suspect]
     Active Substance: PIPERACILLIN
     Indication: Infection
     Dosage: 12 GRAM
     Route: 042
     Dates: start: 20200723, end: 20200730
  78. MIDAZOLAM [Suspect]
     Active Substance: MIDAZOLAM
     Indication: Sedation
     Dosage: 5 MG/HR, CO
     Route: 042
     Dates: start: 20200709, end: 20200713
  79. MIDAZOLAM [Suspect]
     Active Substance: MIDAZOLAM
     Dosage: 5 MILLIGRAM
     Route: 042
     Dates: start: 20200709, end: 20200713
  80. ISUPREL [Suspect]
     Active Substance: ISOPROTERENOL HYDROCHLORIDE
     Indication: Product used for unknown indication
     Dosage: UNK
     Route: 065
     Dates: start: 20200711, end: 20200713
  81. CALCIUM PHOSPHATE, DIBASIC, ANHYDROUS\MAGNESIUM GLYCEROPHOSPHATE\PHOSP [Suspect]
     Active Substance: CALCIUM PHOSPHATE, DIBASIC, ANHYDROUS\MAGNESIUM GLYCEROPHOSPHATE\PHOSPHORIC ACID\SODIUM PHOSPHATE, D
     Indication: Pneumonia
     Dosage: 6 MILLIGRAM, QD
     Route: 042
     Dates: start: 20200708, end: 20200715
  82. CALCIUM PHOSPHATE, DIBASIC, ANHYDROUS\MAGNESIUM GLYCEROPHOSPHATE\PHOSP [Suspect]
     Active Substance: CALCIUM PHOSPHATE, DIBASIC, ANHYDROUS\MAGNESIUM GLYCEROPHOSPHATE\PHOSPHORIC ACID\SODIUM PHOSPHATE, D
     Dosage: UNK
     Route: 065
  83. OTILIMAB [Suspect]
     Active Substance: OTILIMAB
     Indication: COVID-19
     Dosage: 1 DOSAGE FORM
     Route: 058
     Dates: start: 20200708
  84. DIAMOX SEQUELS [Suspect]
     Active Substance: ACETAZOLAMIDE
     Indication: Product used for unknown indication
     Dosage: UNK
     Route: 058
  85. DIAMOX SEQUELS [Suspect]
     Active Substance: ACETAZOLAMIDE
     Dosage: UNK
     Route: 065
  86. AMIODARONE [Suspect]
     Active Substance: AMIODARONE
     Indication: Atrial fibrillation
     Dosage: 907.2 MG, CO
     Route: 042
     Dates: start: 20200725, end: 20200727
  87. AMIODARONE [Suspect]
     Active Substance: AMIODARONE
     Dosage: 907.2 MG, CO
     Route: 042
     Dates: start: 20200725, end: 20200727
  88. AMIODARONE [Suspect]
     Active Substance: AMIODARONE
     Dosage: UNK
  89. DUPHALAC [Suspect]
     Active Substance: LACTULOSE
     Indication: Constipation
     Dosage: 20 GRAM, BID
     Route: 048
     Dates: start: 20200713, end: 20200715
  90. DUPHALAC [Suspect]
     Active Substance: LACTULOSE
     Dosage: 80 MILLIGRAM, QOD
     Route: 048
  91. DUPHALAC [Suspect]
     Active Substance: LACTULOSE
     Dosage: 40 MILLIGRAM
     Route: 048
  92. NIMBEX [Suspect]
     Active Substance: CISATRACURIUM BESYLATE
     Indication: Endotracheal intubation
     Dosage: 20 MILLIGRAM, QD
     Route: 042
     Dates: start: 20200715, end: 20200715
  93. NIMBEX [Suspect]
     Active Substance: CISATRACURIUM BESYLATE
     Indication: Neuromuscular blocking therapy
     Dosage: UNK
     Route: 065
  94. CLONIDINE [Suspect]
     Active Substance: CLONIDINE
     Indication: Hypertension
     Dosage: UNK
     Route: 042
     Dates: start: 20200717, end: 20200717
  95. CLONIDINE [Suspect]
     Active Substance: CLONIDINE
     Indication: Sedation
  96. FENOTEROL\IPRATROPIUM [Suspect]
     Active Substance: FENOTEROL\IPRATROPIUM
     Indication: Bronchial disorder
     Dosage: 1.5 MILLIGRAM, QD (0.5 MG, TID)
     Route: 055
     Dates: start: 20200730, end: 20200803
  97. FENOTEROL\IPRATROPIUM [Suspect]
     Active Substance: FENOTEROL\IPRATROPIUM
     Indication: Inhalation therapy
     Dosage: 6 MILLIGRAM
     Route: 055
  98. FENOTEROL\IPRATROPIUM [Suspect]
     Active Substance: FENOTEROL\IPRATROPIUM
     Dosage: 1.5 MILLIGRAM
     Route: 055
  99. FENOTEROL\IPRATROPIUM [Suspect]
     Active Substance: FENOTEROL\IPRATROPIUM
     Dosage: UNK
     Route: 065
  100. FENOTEROL\IPRATROPIUM [Suspect]
     Active Substance: FENOTEROL\IPRATROPIUM
     Dosage: 6 MILLIGRAM
     Route: 065
  101. FENOTEROL\IPRATROPIUM [Suspect]
     Active Substance: FENOTEROL\IPRATROPIUM
     Dosage: 4.5 MILLIGRAM, QD
     Route: 065
     Dates: start: 20200730, end: 20200730
  102. DIAZEPAM [Suspect]
     Active Substance: DIAZEPAM
     Indication: Product used for unknown indication
     Dosage: UNK
     Route: 065
  103. ISOSORBIDE DINITRATE [Suspect]
     Active Substance: ISOSORBIDE DINITRATE
     Indication: Product used for unknown indication
     Dosage: UNK
     Route: 065
     Dates: start: 20200714, end: 20200720
  104. LOPERAMIDE [Suspect]
     Active Substance: LOPERAMIDE
     Indication: Diarrhoea
     Dosage: 4 MILLIGRAM, SINGLE
     Route: 048
     Dates: start: 20200804, end: 20200804
  105. THIAMINE HYDROCHLORIDE [Suspect]
     Active Substance: THIAMINE HYDROCHLORIDE
     Indication: Product used for unknown indication
     Route: 065
  106. URAPIDIL [Suspect]
     Active Substance: URAPIDIL
     Indication: Hypertension
     Dosage: 5 MG/ HR, CO
     Route: 065
     Dates: start: 20200709, end: 20200709
  107. HYDROXYUREA [Concomitant]
     Active Substance: HYDROXYUREA
     Indication: Product used for unknown indication
     Dosage: UNK
     Route: 065
  108. ATORVASTATIN [Concomitant]
     Active Substance: ATORVASTATIN
     Indication: Product used for unknown indication
     Dosage: UNK
     Route: 065
  109. POTASSIUM GLUCONATE [Concomitant]
     Active Substance: POTASSIUM GLUCONATE
     Indication: Product used for unknown indication
     Dosage: UNK
     Route: 065
  110. KARDEGIC [Concomitant]
     Active Substance: ASPIRIN DL-LYSINE
     Indication: Product used for unknown indication
     Dosage: UNK
     Route: 065
  111. AMIODARONE [Concomitant]
     Active Substance: AMIODARONE
     Indication: Atrial fibrillation
     Route: 065

REACTIONS (1)
  - Toxic epidermal necrolysis [Fatal]

NARRATIVE: CASE EVENT DATE: 20200809
